FAERS Safety Report 25395447 (Version 3)
Quarter: 2025Q3

REPORT INFORMATION
  Report Type: Spontaneous
  Country: JP (occurrence: JP)
  Receive Date: 20250604
  Receipt Date: 20250820
  Transmission Date: 20251020
  Serious: Yes (Other)
  Sender: ALEXION PHARMACEUTICALS
  Company Number: JP-ASTRAZENECA-250053736_011620_P_1

PATIENT
  Sex: Male

DRUGS (2)
  1. LYNPARZA [Suspect]
     Active Substance: OLAPARIB
     Indication: Prostate cancer
  2. NUBEQA [Concomitant]
     Active Substance: DAROLUTAMIDE
     Indication: Prostate cancer
     Route: 065

REACTIONS (5)
  - Pelvic fracture [Unknown]
  - Blood glucose increased [Unknown]
  - Prostatic specific antigen increased [Unknown]
  - Metastases to pelvis [Unknown]
  - Malignant neoplasm progression [Unknown]
